FAERS Safety Report 9796076 (Version 1)
Quarter: 2014Q1

REPORT INFORMATION
  Report Type: Spontaneous
  Country: FR (occurrence: FR)
  Receive Date: 20140103
  Receipt Date: 20140103
  Transmission Date: 20141002
  Serious: Yes (Other)
  Sender: FDA-Public Use
  Company Number: FR-BRISTOL-MYERS SQUIBB COMPANY-19947514

PATIENT
  Sex: Male

DRUGS (1)
  1. ELISOR [Suspect]

REACTIONS (2)
  - Tendon rupture [Unknown]
  - Muscle strain [Unknown]
